FAERS Safety Report 23863469 (Version 2)
Quarter: 2024Q3

REPORT INFORMATION
  Report Type: Spontaneous
  Country: BG (occurrence: BG)
  Receive Date: 20240516
  Receipt Date: 20240716
  Transmission Date: 20241016
  Serious: Yes (Other)
  Sender: AMGEN
  Company Number: BG-AMGEN-BGRSP2024095378

PATIENT
  Age: 63 Year
  Sex: Male

DRUGS (1)
  1. LUMAKRAS [Suspect]
     Active Substance: SOTORASIB
     Indication: Non-small cell lung cancer
     Dosage: 480 MILLIGRAM, QD
     Route: 065
     Dates: start: 20231005, end: 202311

REACTIONS (4)
  - Hepatorenal syndrome [Unknown]
  - Hypocoagulable state [Unknown]
  - Off label use [Unknown]
  - Anaemia [Unknown]
